FAERS Safety Report 25716382 (Version 2)
Quarter: 2025Q4

REPORT INFORMATION
  Report Type: Spontaneous
  Country: US (occurrence: US)
  Receive Date: 20250822
  Receipt Date: 20251016
  Transmission Date: 20260118
  Serious: Yes (Hospitalization)
  Sender: NOVO NORDISK
  Company Number: US-NOVOPROD-1503816

PATIENT
  Age: 83 Year
  Sex: Female
  Weight: 79.365 kg

DRUGS (1)
  1. WEGOVY [Suspect]
     Active Substance: SEMAGLUTIDE
     Indication: Weight control
     Dosage: 2.4 MG, QW
     Route: 058
     Dates: start: 20240520

REACTIONS (1)
  - Knee arthroplasty [Unknown]

NARRATIVE: CASE EVENT DATE: 20250619
